FAERS Safety Report 10286518 (Version 3)
Quarter: 2014Q3

REPORT INFORMATION
  Report Type: Spontaneous
  Country: FR (occurrence: FR)
  Receive Date: 20140709
  Receipt Date: 20140908
  Transmission Date: 20150326
  Serious: Yes (Other)
  Sender: FDA-Public Use
  Company Number: FR-JNJFOC-20140702218

PATIENT
  Age: 57 Year
  Sex: Male
  Weight: 111 kg

DRUGS (2)
  1. STELARA [Suspect]
     Active Substance: USTEKINUMAB
     Indication: PSORIASIS
     Route: 058
  2. STELARA [Suspect]
     Active Substance: USTEKINUMAB
     Indication: PSORIASIS
     Route: 058
     Dates: start: 20120209

REACTIONS (4)
  - Asthenia [Unknown]
  - Blood creatine phosphokinase increased [Recovered/Resolved]
  - Incorrect route of drug administration [Unknown]
  - Muscle contracture [Recovered/Resolved]

NARRATIVE: CASE EVENT DATE: 20140410
